FAERS Safety Report 12903821 (Version 1)
Quarter: 2016Q4

REPORT INFORMATION
  Report Type: Spontaneous
  Country: CA (occurrence: CA)
  Receive Date: 20161102
  Receipt Date: 20161102
  Transmission Date: 20170207
  Serious: Yes (Hospitalization)
  Sender: FDA-Public Use
  Company Number: CA-FRESENIUS KABI-FK201608349

PATIENT
  Age: 86 Year
  Sex: Male
  Weight: 75 kg

DRUGS (26)
  1. BISACODYL. [Concomitant]
     Active Substance: BISACODYL
  2. ESOMEPRAZOLE [Concomitant]
     Active Substance: ESOMEPRAZOLE
  3. SODIUM CHLORIDE. [Concomitant]
     Active Substance: SODIUM CHLORIDE
  4. CEFTRIAXON (MANUFACTURER UNKNOWN) [Suspect]
     Active Substance: CEFTRIAXONE
     Indication: INFECTION
     Route: 042
  5. PIPERACILLIN/TAZOBACTAM (MANUFACTURER UNKNOWN) [Suspect]
     Active Substance: PIPERACILLIN SODIUM\TAZOBACTAM SODIUM
     Indication: INFECTION
     Route: 042
  6. PHOSPHATE [Concomitant]
     Active Substance: UNSPECIFIED INGREDIENT
  7. RISPERIDONE. [Concomitant]
     Active Substance: RISPERIDONE
  8. ACETAMINOPHEN. [Concomitant]
     Active Substance: ACETAMINOPHEN
  9. DOCUSATE SODIUM. [Concomitant]
     Active Substance: DOCUSATE SODIUM
  10. FLORINEF ACETATE [Concomitant]
     Active Substance: FLUDROCORTISONE ACETATE
  11. HYDRALAZINE [Concomitant]
     Active Substance: HYDRALAZINE HYDROCHLORIDE
  12. MAGNESIUM SULFATE. [Concomitant]
     Active Substance: MAGNESIUM SULFATE
  13. NIMOTOP [Concomitant]
     Active Substance: NIMODIPINE
  14. CLONIDINE. [Concomitant]
     Active Substance: CLONIDINE
  15. HYDROMORPHONE [Concomitant]
     Active Substance: HYDROMORPHONE
  16. POTASSIUM CHLORIDE. [Concomitant]
     Active Substance: POTASSIUM CHLORIDE
  17. SENNOSIDES. [Concomitant]
     Active Substance: SENNOSIDES
  18. LACTULOSE SYRUP [Concomitant]
  19. MIDAZOLAM [Concomitant]
     Active Substance: MIDAZOLAM\MIDAZOLAM HYDROCHLORIDE
  20. RANITIDINE. [Concomitant]
     Active Substance: RANITIDINE
  21. MAGNOLAX WITH CASCARA [Concomitant]
  22. METOPROLOL. [Concomitant]
     Active Substance: METOPROLOL
  23. HEPARIN (MANUFACTURER UNKNOWN) [Suspect]
     Active Substance: HEPARIN SODIUM
     Indication: THROMBOSIS PROPHYLAXIS
     Route: 058
  24. CHLORHEXIDINE [Concomitant]
     Active Substance: CHLORHEXIDINE
  25. MEPERIDINE [Concomitant]
     Active Substance: MEPERIDINE
  26. POTASSIUM CHLORIDE IN SODIUM CHLORIDE INJECTION USP [Concomitant]

REACTIONS (6)
  - Toxic epidermal necrolysis [Recovering/Resolving]
  - Pruritus [Recovering/Resolving]
  - Rash erythematous [Recovering/Resolving]
  - Rash generalised [Recovering/Resolving]
  - Stevens-Johnson syndrome [Recovering/Resolving]
  - Skin exfoliation [Recovering/Resolving]
